FAERS Safety Report 17213136 (Version 1)
Quarter: 2019Q4

REPORT INFORMATION
  Report Type: Spontaneous
  Country: US (occurrence: US)
  Receive Date: 20191205
  Receipt Date: 20191205
  Transmission Date: 20200122
  Serious: Yes (Hospitalization)
  Sender: FDA-Public Use
  Company Number: None

PATIENT
  Age: 61 Year
  Sex: Female

DRUGS (15)
  1. GABAPENTIN. [Concomitant]
     Active Substance: GABAPENTIN
  2. BUPROPIN [Concomitant]
     Active Substance: BUPROPION
  3. RABERPRAZOLE [Concomitant]
  4. CIPROFLAXACN [Concomitant]
  5. EZELIMBE [Concomitant]
  6. NITRFUR [Concomitant]
  7. ACTEMRA [Suspect]
     Active Substance: TOCILIZUMAB
     Dosage: ?          OTHER DOSE:152MG/.9ML;?
     Route: 058
     Dates: start: 20190121
  8. ESTRADIOL. [Concomitant]
     Active Substance: ESTRADIOL
  9. DICYLOMINE [Concomitant]
  10. RESTASIS [Concomitant]
     Active Substance: CYCLOSPORINE
  11. ROSUVASTATIN. [Concomitant]
     Active Substance: ROSUVASTATIN
  12. ALLOPURINOL. [Concomitant]
     Active Substance: ALLOPURINOL
  13. LEVOTHYROXIN [Concomitant]
     Active Substance: LEVOTHYROXINE
  14. METHOTREXATE. [Concomitant]
     Active Substance: METHOTREXATE
  15. VALASART [Concomitant]

REACTIONS (1)
  - Hospitalisation [None]

NARRATIVE: CASE EVENT DATE: 20191204
